FAERS Safety Report 19858027 (Version 1)
Quarter: 2021Q3

REPORT INFORMATION
  Report Type: Spontaneous
  Country: NL (occurrence: NL)
  Receive Date: 20210921
  Receipt Date: 20210921
  Transmission Date: 20211014
  Serious: Yes (Other)
  Sender: FDA-Public Use
  Company Number: NL-TERSERA THERAPEUTICS LLC-2021TRS003862

PATIENT

DRUGS (3)
  1. ZOLADEX [Suspect]
     Active Substance: GOSERELIN ACETATE
     Indication: PROSTATE CANCER
     Dosage: 10.8 MILLIGRAM, EVERY THREE MONTHS
     Route: 058
     Dates: start: 20201127, end: 20210627
  2. COLESTYRAMINE [Concomitant]
     Active Substance: CHOLESTYRAMINE
     Indication: ANORECTAL DISORDER
     Dosage: 4MG SACHET
     Route: 065
     Dates: start: 20210716
  3. TAMSULOSINE [TAMSULOSIN] [Concomitant]
     Active Substance: TAMSULOSIN
     Indication: BLADDER DYSFUNCTION
     Dosage: 0,4MG, 4X/D CAPSULE
     Route: 065
     Dates: start: 20210429

REACTIONS (6)
  - Dehydration [Unknown]
  - Feeling cold [Unknown]
  - Nocturia [Unknown]
  - Malaise [Unknown]
  - Hot flush [Unknown]
  - Intentional dose omission [Unknown]

NARRATIVE: CASE EVENT DATE: 20210330
